FAERS Safety Report 14727371 (Version 1)
Quarter: 2018Q2

REPORT INFORMATION
  Report Type: Spontaneous
  Country: US (occurrence: US)
  Receive Date: 20180406
  Receipt Date: 20180406
  Transmission Date: 20180711
  Serious: No
  Sender: FDA-Public Use
  Company Number: US-BAYER-2018-058235

PATIENT

DRUGS (1)
  1. ALEVE [Suspect]
     Active Substance: NAPROXEN SODIUM
     Indication: SCIATICA
     Dosage: UNK
     Dates: start: 20180319

REACTIONS (4)
  - Off label use [Unknown]
  - Neuralgia [None]
  - Drug ineffective for unapproved indication [None]
  - Therapeutic response unexpected [Unknown]
